FAERS Safety Report 8218149-4 (Version None)
Quarter: 2012Q1

REPORT INFORMATION
  Report Type: 
  Country: None (occurrence: None)
  Receive Date: 20120319
  Receipt Date: 20120308
  Transmission Date: 20120608
  Serious: Yes (Other)
  Sender: FDA-Public Use
  Company Number: US-PERRIGO-12US002100

PATIENT
  Sex: Female
  Weight: 56.689 kg

DRUGS (2)
  1. FLU + SEVERE COLD + COUGH NIGHTTIME 964 [Suspect]
     Indication: PAIN
     Dosage: 1 POUCH, EVERY OTHER DAY, OPPOSITE LORAZEPAM
     Route: 048
     Dates: start: 20120115, end: 20120307
  2. LORAZEPAM [Suspect]
     Indication: DEPRESSION
     Dosage: 1 TABLET EVERY OTHER DAY
     Route: 048

REACTIONS (2)
  - AMNESIA [None]
  - DRUG INTERACTION [None]
